FAERS Safety Report 14787591 (Version 1)
Quarter: 2018Q2

REPORT INFORMATION
  Report Type: Spontaneous
  Country: US (occurrence: US)
  Receive Date: 20180421
  Receipt Date: 20180421
  Transmission Date: 20180711
  Serious: No
  Sender: FDA-Public Use
  Company Number: US-DUCHESNAY INC.-2017US017857

PATIENT
  Sex: Female

DRUGS (2)
  1. OSPHENA [Suspect]
     Active Substance: OSPEMIFENE
     Indication: DYSPAREUNIA
     Dosage: 60 MG, DAILY
     Route: 048
  2. SINGULAIR [Concomitant]
     Active Substance: MONTELUKAST SODIUM
     Indication: ASTHMA

REACTIONS (3)
  - Chest pain [Not Recovered/Not Resolved]
  - Weight increased [Not Recovered/Not Resolved]
  - Breast discomfort [Not Recovered/Not Resolved]
